FAERS Safety Report 11555670 (Version 1)
Quarter: 2015Q3

REPORT INFORMATION
  Report Type: Spontaneous
  Country: US (occurrence: US)
  Receive Date: 20150925
  Receipt Date: 20150925
  Transmission Date: 20151125
  Serious: No
  Sender: FDA-Public Use
  Company Number: US-BAYER-2015-425181

PATIENT
  Age: 93 Year
  Sex: Female

DRUGS (16)
  1. ARTHROTEC [DICLOFENAC SODIUM] [Concomitant]
     Dosage: 1 DF, BID
     Route: 048
     Dates: start: 20140825
  2. LEVOXYL [Concomitant]
     Active Substance: LEVOTHYROXINE SODIUM
     Dosage: 1 DF, QD
     Route: 048
     Dates: start: 20150701
  3. ZANTAC [Concomitant]
     Active Substance: RANITIDINE HYDROCHLORIDE
     Dosage: 1-2 DF, PRN
     Route: 048
     Dates: start: 20150824
  4. ALLEGRA-D [Concomitant]
     Active Substance: FEXOFENADINE\PSEUDOEPHEDRINE
  5. FELODIPIN [Concomitant]
     Active Substance: FELODIPINE
     Dosage: 1 DF, UNK
     Route: 048
     Dates: start: 20140825
  6. HYZAAR [Concomitant]
     Active Substance: HYDROCHLOROTHIAZIDE\LOSARTAN POTASSIUM
     Dosage: 1 DF, QD
     Route: 048
  7. COREG [Concomitant]
     Active Substance: CARVEDILOL
     Dosage: 1 DF, BID
     Route: 048
     Dates: start: 20150519
  8. LASIX [Concomitant]
     Active Substance: FUROSEMIDE
     Dosage: 1 DF, PRN
     Route: 048
     Dates: start: 20150723
  9. CLARITIN [Suspect]
     Active Substance: LORATADINE
  10. CENTURY SENIOR [Concomitant]
     Dosage: QD
     Route: 048
  11. CRESTOR [Concomitant]
     Active Substance: ROSUVASTATIN CALCIUM
     Dosage: UNK
     Dates: end: 20120111
  12. ZITHROMAX [Concomitant]
     Active Substance: AZITHROMYCIN DIHYDRATE
  13. CHONDROITIN W/GLUCOSAMINE [Concomitant]
     Dosage: 1 DF, BID
     Route: 048
  14. ISTALOL [Concomitant]
     Active Substance: TIMOLOL MALEATE
     Dosage: 1 DF, QD
     Route: 047
  15. LEXAPRO [Concomitant]
     Active Substance: ESCITALOPRAM OXALATE
     Dosage: 1 DF, QD
     Route: 048
     Dates: start: 20150825
  16. XALATAN [Concomitant]
     Active Substance: LATANOPROST
     Dosage: 1 DROP, ONCE AT BEDTIME
     Route: 047
     Dates: start: 20150223

REACTIONS (1)
  - Drug ineffective [None]
